FAERS Safety Report 12065913 (Version 1)
Quarter: 2016Q1

REPORT INFORMATION
  Report Type: Spontaneous
  Country: US (occurrence: None)
  Receive Date: 20160210
  Receipt Date: 20160210
  Transmission Date: 20160526
  Serious: No
  Sender: FDA-Public Use
  Company Number: None

PATIENT
  Sex: Female
  Weight: 47.17 kg

DRUGS (20)
  1. TRIAMCINOLONE OINTMENT [Concomitant]
  2. KENALOG (OINTMENT) [Concomitant]
  3. DESOWEN [Concomitant]
     Active Substance: DESONIDE
  4. VIT B COMPLEX [Concomitant]
  5. FRIUT OF SPIRIT JUICE (VITS+MINERALS) [Concomitant]
  6. VOLTAREN [Concomitant]
     Active Substance: DICLOFENAC SODIUM
  7. OMEPRAZOLE. [Concomitant]
     Active Substance: OMEPRAZOLE
  8. PERCOCET [Concomitant]
     Active Substance: ACETAMINOPHEN\OXYCODONE HYDROCHLORIDE
  9. ALBUTERAL INHALER [Concomitant]
  10. LIDOCAINE OINTMENT [Concomitant]
     Active Substance: LIDOCAINE
  11. DESONCLE CREAM [Concomitant]
  12. DICLOFENAC SODIUM. [Concomitant]
     Active Substance: DICLOFENAC SODIUM
  13. GABAPENTIN. [Concomitant]
     Active Substance: GABAPENTIN
  14. PRILOSEC [Concomitant]
     Active Substance: OMEPRAZOLE MAGNESIUM
  15. CLONAZEPAM. [Suspect]
     Active Substance: CLONAZEPAM
     Indication: ANXIETY
     Dosage: 3X DAILY AS NEEDED 1 PILL BY MOUTH
     Route: 048
     Dates: start: 20151208
  16. IBUPROFEN. [Concomitant]
     Active Substance: IBUPROFEN
  17. FLUTICASONE NASAL SPRAY [Concomitant]
     Active Substance: FLUTICASONE\FLUTICASONE PROPIONATE
  18. PROBIOTIC [Concomitant]
     Active Substance: PROBIOTICS NOS
  19. FLONAZE [Concomitant]
  20. VITAMIN D [Concomitant]
     Active Substance: CHOLECALCIFEROL

REACTIONS (1)
  - Foot operation [None]
